FAERS Safety Report 9132850 (Version 1)
Quarter: 2013Q1

REPORT INFORMATION
  Report Type: Spontaneous
  Country: US (occurrence: US)
  Receive Date: 20130128
  Receipt Date: 20130128
  Transmission Date: 20140127
  Serious: Yes (Hospitalization)
  Sender: FDA-Public Use
  Company Number: US-BAYER-2013-008517

PATIENT
  Age: 34 Year
  Sex: Female
  Weight: 69.84 kg

DRUGS (14)
  1. YASMIN [Suspect]
  2. MIRAPEX [Concomitant]
     Dosage: 0.5 MG, HS
  3. SEROQUEL [Concomitant]
     Dosage: 200 MG, UNK
  4. TIZANIDINE [Concomitant]
     Dosage: 4 MG, EVERY 6 HOURS
  5. LUNESTA [Concomitant]
     Dosage: 4 MG, HS
  6. PROMETHAZINE [Concomitant]
     Indication: VOMITING
     Dosage: 25 MG, EVERY 4 HOURS
     Route: 042
  7. IMITREX [Concomitant]
     Indication: MIGRAINE
     Dosage: 100 MG, PRN
     Route: 048
  8. LISINOPRIL [Concomitant]
     Dosage: 20 MG, DAILY
  9. NORVASC [Concomitant]
     Indication: SYSTOLIC HYPERTENSION
     Dosage: 5 MG, EVERY DAY PRN
  10. NORMAL SALINE [Concomitant]
     Indication: PROPHYLAXIS AGAINST DEHYDRATION
     Dosage: ONE LITER QHS
     Route: 042
  11. KLONOPIN [Concomitant]
     Dosage: 0.5 MG, BID
  12. IBUPROFEN [Concomitant]
     Dosage: 600 MG, EVERY 4 HOURS PRN
  13. ATIVAN [Concomitant]
  14. DILAUDID [Concomitant]

REACTIONS (1)
  - Pulmonary embolism [None]
